FAERS Safety Report 11575413 (Version 1)
Quarter: 2015Q3

REPORT INFORMATION
  Report Type: Spontaneous
  Country: US (occurrence: US)
  Receive Date: 20150916
  Receipt Date: 20150916
  Transmission Date: 20151125
  Serious: No
  Sender: FDA-Public Use
  Company Number: US-ELI_LILLY_AND_COMPANY-US200911006221

PATIENT
  Sex: Female

DRUGS (1)
  1. FORTEO [Suspect]
     Active Substance: TERIPARATIDE
     Indication: OSTEOPOROSIS
     Dosage: 20 UG, DAILY (1/D)
     Dates: start: 2009

REACTIONS (10)
  - Mucous stools [Unknown]
  - Skin wrinkling [Unknown]
  - Haemorrhoids [Unknown]
  - Constipation [Unknown]
  - Pulmonary mass [Unknown]
  - Haematochezia [Unknown]
  - Vulvovaginal pruritus [Unknown]
  - Vulvovaginal burning sensation [Unknown]
  - Peripheral swelling [Unknown]
  - Diarrhoea [Unknown]
